FAERS Safety Report 4413987-8 (Version None)
Quarter: 2004Q3

REPORT INFORMATION
  Report Type: 
  Country: None (occurrence: None)
  Receive Date: 20040728
  Receipt Date: 20040722
  Transmission Date: 20050211
  Serious: Yes (Other)
  Sender: FDA-Public Use
  Company Number: GB-JNJFOC-20040201665

PATIENT
  Age: 11 Year
  Sex: Male
  Weight: 55.5 kg

DRUGS (1)
  1. CONCERTA [Suspect]
     Indication: ATTENTION DEFICIT/HYPERACTIVITY DISORDER
     Dosage: 54 MG, ORAL
     Route: 048
     Dates: start: 20000201

REACTIONS (4)
  - ANOREXIA [None]
  - GYNAECOMASTIA [None]
  - INSOMNIA [None]
  - WEIGHT DECREASED [None]
